FAERS Safety Report 5828457-X (Version None)
Quarter: 2008Q3

REPORT INFORMATION
  Report Type: 
  Country: None (occurrence: None)
  Receive Date: 20080731
  Receipt Date: 20080722
  Transmission Date: 20090109
  Serious: Yes (Hospitalization)
  Sender: FDA-Public Use
  Company Number: GB-AMGEN-UK293490

PATIENT
  Sex: Male
  Weight: 63 kg

DRUGS (4)
  1. NEULASTA [Suspect]
     Indication: CHEMOTHERAPY
     Route: 058
     Dates: start: 20080624, end: 20080624
  2. GEMCITABINE [Concomitant]
     Route: 065
  3. CISPLATIN [Concomitant]
     Route: 065
  4. MEGACE [Concomitant]
     Route: 048

REACTIONS (3)
  - ABDOMINAL PAIN UPPER [None]
  - BACK PAIN [None]
  - NEUTROPHIL COUNT INCREASED [None]
